FAERS Safety Report 7995913-8 (Version None)
Quarter: 2011Q4

REPORT INFORMATION
  Report Type: 
  Country: None (occurrence: None)
  Receive Date: 20111216
  Receipt Date: 20111210
  Transmission Date: 20120403
  Serious: Yes (Hospitalization, Other)
  Sender: FDA-Public Use
  Company Number: 127457

PATIENT
  Age: 70 Year
  Sex: Male

DRUGS (1)
  1. LORAZEPAM [Suspect]
     Dosage: 60MG EVERY 4 HOURS

REACTIONS (4)
  - OVERDOSE [None]
  - IATROGENIC INJURY [None]
  - MEDICATION ERROR [None]
  - UNRESPONSIVE TO STIMULI [None]
